FAERS Safety Report 17704681 (Version 2)
Quarter: 2020Q2

REPORT INFORMATION
  Report Type: Spontaneous
  Country: US (occurrence: US)
  Receive Date: 20200424
  Receipt Date: 20200514
  Transmission Date: 20200714
  Serious: No
  Sender: FDA-Public Use
  Company Number: US-TORRENT-00010178

PATIENT
  Age: 66 Year
  Sex: Male
  Weight: 83 kg

DRUGS (4)
  1. VIAGRA [Concomitant]
     Active Substance: SILDENAFIL CITRATE
     Indication: PRODUCT USED FOR UNKNOWN INDICATION
     Dosage: DAILY ALLOTTED DOSE: 1-2 A DAY
  2. VITAMIN E [Concomitant]
     Active Substance: .ALPHA.-TOCOPHEROL
     Indication: PRODUCT USED FOR UNKNOWN INDICATION
     Dosage: UNKNOWN
     Dates: end: 2019
  3. VITAMIN C [Concomitant]
     Active Substance: ASCORBIC ACID
     Indication: PRODUCT USED FOR UNKNOWN INDICATION
     Dosage: UNKNOWN
     Dates: end: 2019
  4. SILDENAFIL. [Suspect]
     Active Substance: SILDENAFIL
     Indication: ERECTILE DYSFUNCTION
     Dosage: WHENEVER NEEDED LIKE EVERY OTHER WEEK.
     Dates: start: 2019

REACTIONS (2)
  - Product substitution issue [Unknown]
  - Drug ineffective [Unknown]

NARRATIVE: CASE EVENT DATE: 2019
